FAERS Safety Report 9254063 (Version 1)
Quarter: 2013Q2

REPORT INFORMATION
  Report Type: Spontaneous
  Country: US (occurrence: None)
  Receive Date: 20130419
  Receipt Date: 20130419
  Transmission Date: 20140414
  Serious: Yes (Death)
  Sender: FDA-Public Use
  Company Number: ACO_35462_2013

PATIENT
  Age: 45 Year
  Sex: Male

DRUGS (5)
  1. AMPYRA (DALFAMPRIDINE) TABLET, 10MG [Suspect]
     Indication: PRODUCT USED FOR UNKNOWN INDICATION
     Route: 048
  2. GABAPENTIN (GABAPENTIN) [Concomitant]
  3. MULTIVITAMIN (VITAMINS NOS) [Concomitant]
  4. VITAMIN D (ERGOCALCIFEROL) [Concomitant]
  5. LORAZEPAM (LORAZEPAM) [Concomitant]

REACTIONS (1)
  - Death [None]
